FAERS Safety Report 7710725-8 (Version None)
Quarter: 2011Q3

REPORT INFORMATION
  Report Type: 
  Country: None (occurrence: None)
  Receive Date: 20110825
  Receipt Date: 20110817
  Transmission Date: 20111222
  Serious: Yes (Other)
  Sender: FDA-Public Use
  Company Number: JP-AMGEN-JPNCT2011042098

PATIENT
  Age: 48 Year
  Sex: Female

DRUGS (2)
  1. DENOSUMAB [Suspect]
     Indication: METASTASES TO BONE
     Dosage: UNK
     Dates: end: 20110324
  2. PACLITAXEL [Concomitant]

REACTIONS (1)
  - PAIN IN JAW [None]
